FAERS Safety Report 6074081-6 (Version None)
Quarter: 2009Q1

REPORT INFORMATION
  Report Type: 
  Country: None (occurrence: None)
  Receive Date: 20090211
  Receipt Date: 20090206
  Transmission Date: 20090719
  Serious: Yes (Other)
  Sender: FDA-Public Use
  Company Number: A0767140A

PATIENT
  Age: 6 Year
  Sex: Male

DRUGS (2)
  1. LAMICTAL [Suspect]
     Indication: CONVULSION
     Route: 048
  2. KEPPRA [Concomitant]

REACTIONS (2)
  - CONVULSION [None]
  - FEELING ABNORMAL [None]
